FAERS Safety Report 19050476 (Version 1)
Quarter: 2021Q1

REPORT INFORMATION
  Report Type: Spontaneous
  Country: US (occurrence: US)
  Receive Date: 20210323
  Receipt Date: 20210323
  Transmission Date: 20210420
  Serious: Yes (Hospitalization, Other)
  Sender: FDA-Public Use
  Company Number: None

PATIENT
  Age: 58 Year
  Sex: Female

DRUGS (17)
  1. EZETIMIBE. [Concomitant]
     Active Substance: EZETIMIBE
  2. FENOFIBRATE. [Concomitant]
     Active Substance: FENOFIBRATE
  3. ISOSORB [Concomitant]
  4. PANTOPRAZOLE [Concomitant]
     Active Substance: PANTOPRAZOLE
  5. RANOLAZINE. [Concomitant]
     Active Substance: RANOLAZINE
  6. AIMOVIG [Concomitant]
     Active Substance: ERENUMAB-AOOE
  7. NITROGLYCERN [Concomitant]
  8. TRAZODONE [Concomitant]
     Active Substance: TRAZODONE HYDROCHLORIDE
  9. CONTOUR [Concomitant]
  10. FARXIGA [Concomitant]
     Active Substance: DAPAGLIFLOZIN PROPANEDIOL
  11. REPATHA [Suspect]
     Active Substance: EVOLOCUMAB
     Indication: CORONARY ARTERY DISEASE
     Dosage: ?          OTHER FREQUENCY:Q30DAYS;?
     Route: 058
     Dates: start: 20170223
  12. AMLODIPINE [Concomitant]
     Active Substance: AMLODIPINE BESYLATE
  13. BUPROPION. [Concomitant]
     Active Substance: BUPROPION
  14. DULOXETINE. [Concomitant]
     Active Substance: DULOXETINE
  15. ASPIRIN. [Concomitant]
     Active Substance: ASPIRIN
  16. FLUOXETINE [Concomitant]
     Active Substance: FLUOXETINE HYDROCHLORIDE
  17. GABAPENTIN. [Concomitant]
     Active Substance: GABAPENTIN

REACTIONS (1)
  - Breast cancer [None]

NARRATIVE: CASE EVENT DATE: 20210224
